FAERS Safety Report 10046679 (Version 1)
Quarter: 2014Q1

REPORT INFORMATION
  Report Type: Spontaneous
  Country: FR (occurrence: FR)
  Receive Date: 20140331
  Receipt Date: 20140331
  Transmission Date: 20141002
  Serious: Yes (Life-Threatening)
  Sender: FDA-Public Use
  Company Number: FR-009507513-1403FRA010404

PATIENT
  Age: 58 Year
  Sex: Male

DRUGS (8)
  1. ORGARAN [Suspect]
     Indication: DEEP VEIN THROMBOSIS
     Dosage: 180 IU, QH
     Route: 042
     Dates: start: 20131216, end: 20131225
  2. ORGARAN [Suspect]
     Indication: HEPARIN-INDUCED THROMBOCYTOPENIA
     Dosage: 150 IU, QH
     Route: 042
     Dates: start: 20131226, end: 20131227
  3. ORGARAN [Suspect]
     Dosage: 210 IU, QH
     Route: 042
     Dates: start: 20131227, end: 20131228
  4. ORGARAN [Suspect]
     Dosage: 150 IU, QH
     Route: 042
     Dates: start: 20131229, end: 20140101
  5. ORGARAN [Suspect]
     Dosage: UNK
     Route: 042
     Dates: start: 201401, end: 20140103
  6. INEXIUM [Concomitant]
     Dosage: UNK
     Dates: start: 20131220
  7. INEXIUM [Concomitant]
     Dosage: UNK
     Dates: start: 20131227
  8. FUROSEMIDE [Concomitant]
     Dosage: UNK
     Route: 042
     Dates: start: 20131223

REACTIONS (3)
  - Tracheal haemorrhage [Recovered/Resolved]
  - Melaena [Recovered/Resolved]
  - Haemorrhage [Recovered/Resolved]
